FAERS Safety Report 19006718 (Version 1)
Quarter: 2021Q1

REPORT INFORMATION
  Report Type: Spontaneous
  Country: US (occurrence: US)
  Receive Date: 20210312
  Receipt Date: 20210312
  Transmission Date: 20210420
  Serious: No
  Sender: FDA-Public Use
  Company Number: None

PATIENT
  Age: 82 Year
  Sex: Female
  Weight: 52.2 kg

DRUGS (12)
  1. CALCIUM 500MG [Concomitant]
  2. PIQRAY [Suspect]
     Active Substance: ALPELISIB
     Indication: BREAST CANCER FEMALE
     Route: 048
     Dates: start: 20210216
  3. VITAMIN B12 1000MCG [Concomitant]
  4. IMODIUM A?D [Concomitant]
     Active Substance: LOPERAMIDE HYDROCHLORIDE
  5. VITAMIN D 1000 UNITS [Concomitant]
  6. MULTIVITAMIN ADULT [Concomitant]
  7. VITAMIN C [Concomitant]
     Active Substance: ASCORBIC ACID
  8. PRESERVISION AREDS [Concomitant]
     Active Substance: MINERALS\VITAMINS
  9. ALPRAZOLAM 0.5MG [Concomitant]
     Active Substance: ALPRAZOLAM
  10. VALACYCLOVIR 1GM [Concomitant]
     Active Substance: VALACYCLOVIR HYDROCHLORIDE
  11. ADVIL SINUS CONGESTION AND PAIN 10?200MG [Concomitant]
  12. CETIRIZINE [Concomitant]
     Active Substance: CETIRIZINE HYDROCHLORIDE

REACTIONS (4)
  - Pruritus [None]
  - Vision blurred [None]
  - Dry mouth [None]
  - Peripheral swelling [None]

NARRATIVE: CASE EVENT DATE: 20210305
